FAERS Safety Report 18064020 (Version 1)
Quarter: 2020Q3

REPORT INFORMATION
  Report Type: Spontaneous
  Country: US (occurrence: US)
  Receive Date: 20200723
  Receipt Date: 20200723
  Transmission Date: 20201103
  Serious: Yes (Hospitalization)
  Sender: FDA-Public Use
  Company Number: None

PATIENT
  Sex: Female

DRUGS (4)
  1. CLOZARIL [Concomitant]
     Active Substance: CLOZAPINE
  2. ERIVEDGE [Suspect]
     Active Substance: VISMODEGIB
     Indication: BASAL CELL CARCINOMA
     Route: 048
     Dates: start: 20190731
  3. ELIQUIS [Concomitant]
     Active Substance: APIXABAN
  4. FLUPHENAZINE [Concomitant]
     Active Substance: FLUPHENAZINE

REACTIONS (1)
  - Hospitalisation [None]
